FAERS Safety Report 10463339 (Version 3)
Quarter: 2014Q4

REPORT INFORMATION
  Report Type: Spontaneous
  Country: IT (occurrence: IT)
  Receive Date: 20140919
  Receipt Date: 20141226
  Transmission Date: 20150528
  Serious: Yes (Hospitalization)
  Sender: FDA-Public Use
  Company Number: IT-BRISTOL-MYERS SQUIBB COMPANY-21389168

PATIENT
  Age: 85 Year
  Sex: Female
  Weight: 72 kg

DRUGS (6)
  1. TRAVOPROST [Concomitant]
     Active Substance: TRAVOPROST
  2. ISOPTIN [Concomitant]
     Active Substance: VERAPAMIL HYDROCHLORIDE
  3. COUMADIN [Suspect]
     Active Substance: WARFARIN SODIUM
     Indication: ATRIAL FIBRILLATION
     Dosage: 1 DF, PRN
     Route: 048
     Dates: start: 20140101, end: 20140702
  4. FUROSEMIDE. [Concomitant]
     Active Substance: FUROSEMIDE
  5. RAMIPRIL. [Concomitant]
     Active Substance: RAMIPRIL
  6. CARDIOASPIRIN [Suspect]
     Active Substance: ASPIRIN
     Indication: CAROTID ARTERIOSCLEROSIS
     Dosage: CARDIOASPIRIN ^100 MG TABS^ 1 UNIT DAILY
     Route: 048
     Dates: start: 20140627, end: 20140702

REACTIONS (4)
  - International normalised ratio increased [Recovering/Resolving]
  - Gastritis erosive [Recovering/Resolving]
  - Rectal haemorrhage [Recovering/Resolving]
  - Anaemia [Recovering/Resolving]

NARRATIVE: CASE EVENT DATE: 20140701
